FAERS Safety Report 25240048 (Version 1)
Quarter: 2025Q2

REPORT INFORMATION
  Report Type: Spontaneous
  Country: CO (occurrence: CO)
  Receive Date: 20250425
  Receipt Date: 20250425
  Transmission Date: 20250717
  Serious: Yes (Other)
  Sender: PFIZER
  Company Number: CO-PFIZER INC-202500085505

PATIENT
  Age: 53 Year
  Sex: Male

DRUGS (3)
  1. AXITINIB [Suspect]
     Active Substance: AXITINIB
     Indication: Clear cell renal cell carcinoma
  2. EVEROLIMUS [Concomitant]
     Active Substance: EVEROLIMUS
  3. CABOZANTINIB [Concomitant]
     Active Substance: CABOZANTINIB

REACTIONS (7)
  - Gastrointestinal toxicity [Unknown]
  - Clear cell renal cell carcinoma [Unknown]
  - Malignant neoplasm progression [Unknown]
  - Empty sella syndrome [Unknown]
  - Thyroid disorder [Unknown]
  - Osteopenia [Unknown]
  - Lymphadenopathy [Unknown]

NARRATIVE: CASE EVENT DATE: 20241001
